FAERS Safety Report 18965523 (Version 1)
Quarter: 2021Q1

REPORT INFORMATION
  Report Type: Spontaneous
  Country: US (occurrence: US)
  Receive Date: 20210303
  Receipt Date: 20210303
  Transmission Date: 20210420
  Serious: Yes (Other)
  Sender: FDA-Public Use
  Company Number: US-PFIZER INC-2021218515

PATIENT
  Age: 6 Month
  Sex: Male
  Weight: 9.07 kg

DRUGS (1)
  1. SERTRALINE HCL [Suspect]
     Active Substance: SERTRALINE HYDROCHLORIDE
     Dosage: 25 MG
     Route: 063

REACTIONS (4)
  - Haematochezia [Unknown]
  - Lactose intolerance [Unknown]
  - Maternal exposure during breast feeding [Unknown]
  - Milk allergy [Unknown]
